FAERS Safety Report 9407096 (Version 2)
Quarter: 2013Q3

REPORT INFORMATION
  Report Type: Spontaneous
  Country: US (occurrence: US)
  Receive Date: 20130718
  Receipt Date: 20130821
  Transmission Date: 20140515
  Serious: Yes (Other)
  Sender: FDA-Public Use
  Company Number: US-PFIZER INC-2013199868

PATIENT
  Sex: Female
  Weight: 49.89 kg

DRUGS (2)
  1. ROBITUSSIN PEAK COLD MULTI-SYMPTOM COLD [Suspect]
     Indication: NASOPHARYNGITIS
     Dosage: UNK, AS NEEDED
     Dates: start: 20130627, end: 20130702
  2. COUMADINE [Concomitant]
     Indication: PULMONARY THROMBOSIS
     Dosage: 5 MG, DAILY
     Dates: start: 2009

REACTIONS (1)
  - International normalised ratio increased [Unknown]
